FAERS Safety Report 8439062-3 (Version None)
Quarter: 2012Q2

REPORT INFORMATION
  Report Type: 
  Country: None (occurrence: None)
  Receive Date: 20120615
  Receipt Date: 20120606
  Transmission Date: 20120825
  Serious: Yes (Hospitalization)
  Sender: FDA-Public Use
  Company Number: JP-EISAI INC-E3810-05594-SPO-JP

PATIENT
  Age: 82 Year
  Sex: Female

DRUGS (8)
  1. RABEPRAZOLE SODIUM [Suspect]
     Indication: GASTRIC ULCER
     Route: 048
     Dates: start: 20120203
  2. CANDESARTAN CILEXETIL [Concomitant]
     Indication: HYPERTENSION
     Route: 048
     Dates: start: 20081226
  3. BUFFERIN [Concomitant]
     Route: 048
  4. DILTIAZEM HCL [Concomitant]
     Route: 048
  5. DEPAS [Concomitant]
     Route: 048
  6. TRICHLORMETHIAZIDE [Suspect]
     Route: 048
     Dates: start: 20120120
  7. ALINAMIN-F [Concomitant]
     Route: 048
  8. LASIX [Concomitant]
     Route: 048
     Dates: start: 20111224

REACTIONS (2)
  - DELIRIUM [None]
  - HYPONATRAEMIA [None]
